FAERS Safety Report 10978373 (Version 1)
Quarter: 2015Q1

REPORT INFORMATION
  Report Type: Spontaneous
  Country: FR (occurrence: None)
  Receive Date: 20150331
  Receipt Date: 20150331
  Transmission Date: 20150721
  Serious: Yes (Hospitalization, Other)
  Sender: FDA-Public Use
  Company Number: FR-2015VAL000233

PATIENT
  Age: 29 Year
  Sex: Female

DRUGS (1)
  1. BROMOCRIPTINE MESYLATE [Suspect]
     Active Substance: BROMOCRIPTINE MESYLATE
     Indication: LACTATION INHIBITION THERAPY

REACTIONS (8)
  - Maternal exposure during pregnancy [None]
  - Premature delivery [None]
  - Psychomotor hyperactivity [None]
  - Insomnia [None]
  - Hypersensitivity [None]
  - Decreased appetite [None]
  - Brief psychotic disorder, with postpartum onset [None]
  - Obsessive-compulsive disorder [None]
